FAERS Safety Report 10614367 (Version 4)
Quarter: 2015Q4

REPORT INFORMATION
  Report Type: Report from Study
  Country: BR (occurrence: BR)
  Receive Date: 20141128
  Receipt Date: 20151029
  Transmission Date: 20160304
  Serious: Yes (Other)
  Sender: FDA-Public Use
  Company Number: PHHY2014BR156042

PATIENT
  Sex: Female
  Weight: 58 kg

DRUGS (5)
  1. ESCITALOPRAM OXALATE. [Concomitant]
     Active Substance: ESCITALOPRAM OXALATE
     Indication: DEPRESSION
     Dosage: 1 DF, BID (STARTED 3 YEARS AGO)
     Route: 048
  2. ENALAPRIL [Concomitant]
     Active Substance: ENALAPRIL
     Indication: BLOOD PRESSURE ABNORMAL
     Dosage: 2 DF, QD
     Route: 065
  3. VITAMIN D [Concomitant]
     Active Substance: CHOLECALCIFEROL
     Indication: SKIN DISORDER
     Dosage: 5 DRP, UNK
     Route: 065
  4. VICOG [Concomitant]
     Active Substance: VINPOCETINE
     Indication: BRAIN HYPOXIA
     Dosage: 1 DF, BID (STARTED 5 YEARS AGO)
     Route: 048
  5. ACLASTA [Suspect]
     Active Substance: ZOLEDRONIC ACID
     Indication: OSTEOPOROSIS
     Dosage: 1 DF, Q12MO
     Route: 042
     Dates: start: 2010, end: 2010

REACTIONS (7)
  - Tendon rupture [Recovering/Resolving]
  - Abasia [Not Recovered/Not Resolved]
  - Hypertension [Recovering/Resolving]
  - Limb injury [Recovering/Resolving]
  - Femur fracture [Recovered/Resolved]
  - Dementia [Recovering/Resolving]
  - Fall [Recovered/Resolved]
